FAERS Safety Report 6736891-9 (Version None)
Quarter: 2010Q2

REPORT INFORMATION
  Report Type: 
  Country: None (occurrence: None)
  Receive Date: 20100521
  Receipt Date: 20100512
  Transmission Date: 20101027
  Serious: Yes (Other)
  Sender: FDA-Public Use
  Company Number: GB-ABBOTT-10P-167-0645813-00

PATIENT

DRUGS (3)
  1. RITONAVIR [Suspect]
     Indication: HIV INFECTION
  2. ATAZANAVIR [Suspect]
     Indication: HIV INFECTION
  3. KIVEXA [Suspect]
     Indication: HIV INFECTION

REACTIONS (2)
  - CENTRAL NERVOUS SYSTEM VIRAL INFECTION [None]
  - NEUROLOGICAL SYMPTOM [None]
